FAERS Safety Report 5209876-1 (Version None)
Quarter: 2007Q1

REPORT INFORMATION
  Report Type: 
  Country: None (occurrence: None)
  Receive Date: 20070110
  Receipt Date: 20070105
  Transmission Date: 20070707
  Serious: Yes (Death)
  Sender: FDA-Public Use
  Company Number: 200610114BBE

PATIENT
  Age: 68 Year
  Sex: Female
  Weight: 69 kg

DRUGS (9)
  1. GAMUNEX [Suspect]
     Indication: DEMYELINATING POLYNEUROPATHY
     Dosage: 20 G TOTAL DAILY INTRAVENOUS
     Route: 042
     Dates: start: 20060331
  2. GAMUNEX [Suspect]
     Indication: DEMYELINATING POLYNEUROPATHY
     Dosage: 20 G TOTAL DAILY INTRAVENOUS
     Route: 042
     Dates: start: 20060401
  3. GAMUNEX [Suspect]
     Indication: DEMYELINATING POLYNEUROPATHY
     Dosage: 10 G TOTAL DAILY INTRAVENOUS
     Route: 042
     Dates: start: 20060331
  4. GAMUNEX [Suspect]
     Indication: DEMYELINATING POLYNEUROPATHY
     Dosage: 10 G TOTAL DAILY INTRAVENOUS
     Route: 042
     Dates: start: 20060401
  5. TYLENOL [Concomitant]
  6. STATEX [Concomitant]
  7. COLACE [Concomitant]
  8. NORFLEX [Concomitant]
  9. ATIVAN [Concomitant]

REACTIONS (4)
  - GENERAL PHYSICAL HEALTH DETERIORATION [None]
  - PNEUMONIA [None]
  - SEPTIC SHOCK [None]
  - WEIGHT DECREASED [None]
